FAERS Safety Report 20334556 (Version 1)
Quarter: 2022Q1

REPORT INFORMATION
  Report Type: Spontaneous
  Country: CN (occurrence: CN)
  Receive Date: 20220114
  Receipt Date: 20220114
  Transmission Date: 20220423
  Serious: Yes (Other)
  Sender: FDA-Public Use
  Company Number: CN-009507513-2201CHN002351

PATIENT
  Age: 64 Year
  Sex: Female
  Weight: 62 kg

DRUGS (2)
  1. CUBICIN [Suspect]
     Active Substance: DAPTOMYCIN
     Indication: Anti-infective therapy
     Dosage: 0.5 G, ONCE A DAY
     Route: 041
     Dates: start: 20211213, end: 20211220
  2. RIFAMPIN [Suspect]
     Active Substance: RIFAMPIN
     Indication: Anti-infective therapy
     Dosage: 0.6 GRAM, Q12H
     Route: 048
     Dates: start: 20211217, end: 20211221

REACTIONS (3)
  - Tuberculosis [Unknown]
  - Vomiting [Recovering/Resolving]
  - Decreased appetite [Recovering/Resolving]

NARRATIVE: CASE EVENT DATE: 20211201
